FAERS Safety Report 9667808 (Version 6)
Quarter: 2014Q3

REPORT INFORMATION
  Report Type: Spontaneous
  Country: US (occurrence: US)
  Receive Date: 20131104
  Receipt Date: 20140822
  Transmission Date: 20150326
  Serious: No
  Sender: FDA-Public Use
  Company Number: US-009507513-1310USA014030

PATIENT
  Sex: Male
  Weight: 77.98 kg

DRUGS (6)
  1. PROPECIA [Suspect]
     Active Substance: FINASTERIDE
     Indication: HAIR TRANSPLANT
  2. FINASTERIDE. [Suspect]
     Active Substance: FINASTERIDE
     Indication: HAIR TRANSPLANT
  3. FINASTERIDE. [Suspect]
     Active Substance: FINASTERIDE
     Indication: ALOPECIA
  4. FINASTERIDE. [Suspect]
     Active Substance: FINASTERIDE
     Indication: ANDROGENETIC ALOPECIA
     Dosage: 1 MG, UNK
     Route: 048
     Dates: start: 200902, end: 201211
  5. PROPECIA [Suspect]
     Active Substance: FINASTERIDE
     Indication: ANDROGENETIC ALOPECIA
     Dosage: 1 MG, UNK
     Route: 048
     Dates: start: 200703, end: 200902
  6. PROPECIA [Suspect]
     Active Substance: FINASTERIDE
     Indication: ALOPECIA

REACTIONS (15)
  - Asthenia [Unknown]
  - Organic erectile dysfunction [Unknown]
  - Nocturia [Unknown]
  - Myosclerosis [Unknown]
  - Sexual dysfunction [Unknown]
  - Testicular pain [Unknown]
  - Cognitive disorder [Unknown]
  - Semen volume decreased [Unknown]
  - Vasectomy [Unknown]
  - Pain [Unknown]
  - Off label use [Unknown]
  - Testicular swelling [Not Recovered/Not Resolved]
  - Testicular disorder [Unknown]
  - Loss of libido [Not Recovered/Not Resolved]
  - Erectile dysfunction [Unknown]

NARRATIVE: CASE EVENT DATE: 200703
